FAERS Safety Report 5066458-2 (Version None)
Quarter: 2006Q3

REPORT INFORMATION
  Report Type: 
  Country: None (occurrence: None)
  Receive Date: 20060728
  Receipt Date: 20060724
  Transmission Date: 20061208
  Serious: Yes (Other)
  Sender: FDA-Public Use
  Company Number: 200611790BCC

PATIENT
  Age: 76 Year
  Sex: Female
  Weight: 70.7611 kg

DRUGS (3)
  1. PHILLIPS LIQID GELS - 30' S (DOCUSATE SODIUM) [Suspect]
     Indication: DRUG USE FOR UNKNOWN INDICATION
     Dosage: 100 MG, ONCE, ORAL
     Route: 048
     Dates: start: 20060424
  2. ANTIBIOTIC [Concomitant]
  3. BLOOD PRESSURE PILL [Concomitant]

REACTIONS (3)
  - ABDOMINAL PAIN [None]
  - HAEMATURIA [None]
  - URINE ANALYSIS ABNORMAL [None]
